FAERS Safety Report 6973919-5 (Version None)
Quarter: 2010Q3

REPORT INFORMATION
  Report Type: 
  Country: None (occurrence: None)
  Receive Date: 20100907
  Receipt Date: 20100824
  Transmission Date: 20110219
  Serious: Yes (Hospitalization)
  Sender: FDA-Public Use
  Company Number: A-CH2010-39205

PATIENT
  Age: 20 Year
  Sex: Male

DRUGS (4)
  1. ZAVESCA [Suspect]
     Indication: NIEMANN-PICK DISEASE
     Dosage: 200 MG TID, ORAL; 100 MG TID; 200 MG, TID, ORAL; 1000 MG , TID, ORAL
     Route: 048
     Dates: end: 20100503
  2. ZAVESCA [Suspect]
     Indication: NIEMANN-PICK DISEASE
     Dosage: 200 MG TID, ORAL; 100 MG TID; 200 MG, TID, ORAL; 1000 MG , TID, ORAL
     Route: 048
     Dates: start: 20100504, end: 20100814
  3. ZAVESCA [Suspect]
     Indication: NIEMANN-PICK DISEASE
     Dosage: 200 MG TID, ORAL; 100 MG TID; 200 MG, TID, ORAL; 1000 MG , TID, ORAL
     Route: 048
     Dates: start: 20071211
  4. CYANOCOBALAMIN [Concomitant]

REACTIONS (5)
  - AGGRESSION [None]
  - ANXIETY [None]
  - HALLUCINATION [None]
  - LOGORRHOEA [None]
  - PSYCHOTIC DISORDER DUE TO A GENERAL MEDICAL CONDITION [None]
